FAERS Safety Report 6097137-0 (Version None)
Quarter: 2009Q1

REPORT INFORMATION
  Report Type: 
  Country: None (occurrence: None)
  Receive Date: 20090227
  Receipt Date: 20090219
  Transmission Date: 20090719
  Serious: Yes (Other)
  Sender: FDA-Public Use
  Company Number: US-AMGEN-QUU334662

PATIENT
  Sex: Female

DRUGS (2)
  1. ENBREL [Suspect]
     Indication: RHEUMATOID ARTHRITIS
     Route: 058
     Dates: start: 20090116
  2. METHOTREXATE [Concomitant]
     Route: 048
     Dates: start: 20080201

REACTIONS (1)
  - GASTROINTESTINAL ULCER HAEMORRHAGE [None]
